FAERS Safety Report 21838746 (Version 1)
Quarter: 2023Q1

REPORT INFORMATION
  Report Type: Spontaneous
  Country: FR (occurrence: FR)
  Receive Date: 20230109
  Receipt Date: 20230109
  Transmission Date: 20230417
  Serious: Yes (Hospitalization)
  Sender: FDA-Public Use
  Company Number: FR-VA000000599-2022001502

PATIENT
  Sex: Female

DRUGS (1)
  1. ACETAMINOPHEN [Suspect]
     Active Substance: ACETAMINOPHEN
     Indication: Toothache
     Dosage: EVERY 2 HOURS FOR DENTAL PAIN FOR 1 DAY UP TO 6/8G
     Route: 048

REACTIONS (3)
  - Malaise [Recovered/Resolved]
  - Accidental overdose [Unknown]
  - Inappropriate schedule of product administration [Unknown]
